FAERS Safety Report 23665411 (Version 4)
Quarter: 2025Q1

REPORT INFORMATION
  Report Type: Report from Study
  Country: IT (occurrence: IT)
  Receive Date: 20240323
  Receipt Date: 20250205
  Transmission Date: 20250408
  Serious: Yes (Hospitalization)
  Sender: ROCHE
  Company Number: IT-ROCHE-3525084

PATIENT
  Age: 71 Year
  Sex: Male

DRUGS (18)
  1. OCREVUS [Suspect]
     Active Substance: OCRELIZUMAB
     Indication: Primary progressive multiple sclerosis
     Dosage: LAST INFUSION ON 22 27/NOV/2023
     Route: 040
     Dates: start: 20190812
  2. OCREVUS [Suspect]
     Active Substance: OCRELIZUMAB
     Route: 040
     Dates: start: 20190812
  3. FLUCONAZOLE [Concomitant]
     Active Substance: FLUCONAZOLE
  4. VANCOMYCIN [Concomitant]
     Active Substance: VANCOMYCIN
  5. MEROPENEM [Concomitant]
     Active Substance: MEROPENEM
  6. CASPOFUNGIN [Concomitant]
     Active Substance: CASPOFUNGIN
  7. ACETAMINOPHEN [Concomitant]
     Active Substance: ACETAMINOPHEN
  8. ENOXAPARIN [Concomitant]
     Active Substance: ENOXAPARIN
  9. METHYLPREDNISOLONE [Concomitant]
     Active Substance: METHYLPREDNISOLONE
  10. ASPIRIN [Concomitant]
     Active Substance: ASPIRIN
  11. AMLODIPINE [Concomitant]
     Active Substance: AMLODIPINE BESYLATE
  12. BISOPROLOL [Concomitant]
     Active Substance: BISOPROLOL
  13. EZETIMIBE [Concomitant]
     Active Substance: EZETIMIBE
  14. LANSOPRAZOLE [Concomitant]
     Active Substance: LANSOPRAZOLE
  15. NITROFURANTOIN [Concomitant]
     Active Substance: NITROFURANTOIN
  16. PREGABALIN [Concomitant]
     Active Substance: PREGABALIN
  17. RAMIPRIL [Concomitant]
     Active Substance: RAMIPRIL
  18. SERTRALINE [Concomitant]
     Active Substance: SERTRALINE HYDROCHLORIDE

REACTIONS (3)
  - Urinary tract candidiasis [Unknown]
  - COVID-19 pneumonia [Unknown]
  - Drug intolerance [Unknown]

NARRATIVE: CASE EVENT DATE: 20240226
